FAERS Safety Report 17585206 (Version 1)
Quarter: 2020Q1

REPORT INFORMATION
  Report Type: Spontaneous
  Country: US (occurrence: US)
  Receive Date: 20200326
  Receipt Date: 20200326
  Transmission Date: 20200409
  Serious: Yes (Hospitalization)
  Sender: FDA-Public Use
  Company Number: None

PATIENT
  Age: 42 Year
  Sex: Female

DRUGS (22)
  1. NYSTATIN. [Concomitant]
     Active Substance: NYSTATIN
  2. PROTONIX [Concomitant]
     Active Substance: PANTOPRAZOLE SODIUM
  3. TALTZ [Suspect]
     Active Substance: IXEKIZUMAB
     Dosage: ?          OTHER FREQUENCY:160DAY1/80ATWEEK2;?
     Route: 058
     Dates: start: 20191203
  4. CALCIPOTREN [Concomitant]
  5. IPRATROPIUM [Concomitant]
     Active Substance: IPRATROPIUM
  6. SINGULAIR [Concomitant]
     Active Substance: MONTELUKAST SODIUM
  7. ELIQUIS [Concomitant]
     Active Substance: APIXABAN
  8. METFORMIN [Concomitant]
     Active Substance: METFORMIN HYDROCHLORIDE
  9. AMLODIPINE [Concomitant]
     Active Substance: AMLODIPINE BESYLATE
  10. ATORVASTATIN [Concomitant]
     Active Substance: ATORVASTATIN
  11. DICYCLOMINE [Concomitant]
     Active Substance: DICYCLOMINE HYDROCHLORIDE
  12. FAMOTIDINE. [Concomitant]
     Active Substance: FAMOTIDINE
  13. AMTRIPTYLIN [Concomitant]
  14. ZOFRAN [Concomitant]
     Active Substance: ONDANSETRON HYDROCHLORIDE
  15. BETHANECHOL [Concomitant]
     Active Substance: BETHANECHOL
  16. LANTUS [Concomitant]
     Active Substance: INSULIN GLARGINE
  17. METOPROLOL TARTRATE. [Concomitant]
     Active Substance: METOPROLOL TARTRATE
  18. ONETOUCH [Concomitant]
  19. CLOPIDOGREL [Concomitant]
     Active Substance: CLOPIDOGREL BISULFATE
  20. HYDROXYZ [Concomitant]
     Active Substance: HYDROXYZINE HYDROCHLORIDE
  21. IBUPROFEN. [Concomitant]
     Active Substance: IBUPROFEN
  22. LOSARTAN. [Concomitant]
     Active Substance: LOSARTAN

REACTIONS (9)
  - Chest pain [None]
  - Diabetes mellitus [None]
  - Myocardial infarction [None]
  - Pneumonia [None]
  - Infection [None]
  - Gastrointestinal disorder [None]
  - Inflammation [None]
  - Thrombosis [None]
  - Irritable bowel syndrome [None]

NARRATIVE: CASE EVENT DATE: 20191228
